FAERS Safety Report 16104343 (Version 4)
Quarter: 2019Q3

REPORT INFORMATION
  Report Type: Spontaneous
  Country: US (occurrence: US)
  Receive Date: 20190322
  Receipt Date: 20190715
  Transmission Date: 20191004
  Serious: No
  Sender: FDA-Public Use
  Company Number: US-PFIZER INC-2019117705

PATIENT
  Age: 54 Year
  Sex: Female

DRUGS (1)
  1. LYRICA [Suspect]
     Active Substance: PREGABALIN
     Indication: FIBROMYALGIA
     Dosage: 50 MG, 3X/DAY
     Route: 048
     Dates: start: 2016

REACTIONS (3)
  - Laryngitis [Recovered/Resolved]
  - Nasopharyngitis [Recovering/Resolving]
  - Speech disorder [Unknown]

NARRATIVE: CASE EVENT DATE: 20190208
